FAERS Safety Report 5805606-0 (Version None)
Quarter: 2008Q3

REPORT INFORMATION
  Report Type: 
  Country: None (occurrence: None)
  Receive Date: 20080708
  Receipt Date: 20080708
  Transmission Date: 20090109
  Serious: Yes (Life-Threatening)
  Sender: FDA-Public Use
  Company Number: None

PATIENT
  Age: 46 Year
  Sex: Female
  Weight: 79.3795 kg

DRUGS (1)
  1. TEQUIN [Suspect]
     Indication: PNEUMONIA
     Dosage: CAN'T RECALL PO
     Route: 048
     Dates: start: 20040223, end: 20040225

REACTIONS (4)
  - ANURIA [None]
  - CONSTIPATION [None]
  - HYPOPHAGIA [None]
  - VOMITING [None]
